FAERS Safety Report 19500063 (Version 3)
Quarter: 2022Q2

REPORT INFORMATION
  Report Type: Spontaneous
  Country: JP (occurrence: JP)
  Receive Date: 20210706
  Receipt Date: 20220428
  Transmission Date: 20220721
  Serious: Yes (Death, Other)
  Sender: FDA-Public Use
  Company Number: JP-MSD-M2021-16047

PATIENT
  Age: 6 Decade
  Sex: Male

DRUGS (2)
  1. NOXAFIL [Suspect]
     Active Substance: POSACONAZOLE
     Dosage: UNK
     Route: 065
  2. TRISENOX [Concomitant]
     Active Substance: ARSENIC TRIOXIDE
     Dosage: UNK
     Route: 065

REACTIONS (2)
  - Death [Fatal]
  - Electrocardiogram QT prolonged [Unknown]
